FAERS Safety Report 13408064 (Version 1)
Quarter: 2017Q2

REPORT INFORMATION
  Report Type: Report from Study
  Country: AU (occurrence: AU)
  Receive Date: 20170406
  Receipt Date: 20170406
  Transmission Date: 20170830
  Serious: Yes (Death)
  Sender: FDA-Public Use
  Company Number: AU-ROCHE-1756777

PATIENT
  Age: 73 Year
  Sex: Male
  Weight: 82.3 kg

DRUGS (14)
  1. PROCTOSEDYL (AUSTRALIA) [Concomitant]
     Indication: HAEMORRHOIDS
     Dosage: 1 U (UNIT)
     Route: 061
     Dates: start: 20160317
  2. ALLOPURINOL. [Concomitant]
     Active Substance: ALLOPURINOL
     Route: 048
     Dates: start: 20160307, end: 20160315
  3. PARACETAMOL [Concomitant]
     Active Substance: ACETAMINOPHEN
     Route: 048
     Dates: start: 20160308, end: 20160324
  4. PETHIDINE [Concomitant]
     Active Substance: MEPERIDINE
     Indication: INFUSION RELATED REACTION
     Route: 042
     Dates: start: 20160308, end: 20160308
  5. METOCLOPRAMIDE. [Concomitant]
     Active Substance: METOCLOPRAMIDE
     Indication: INFUSION RELATED REACTION
     Route: 048
     Dates: start: 20160308, end: 20160308
  6. FRUSEMIDE [Concomitant]
     Active Substance: FUROSEMIDE
     Indication: INFUSION RELATED REACTION
     Route: 048
     Dates: start: 20160309, end: 20160311
  7. CIPROFLOXACIN. [Concomitant]
     Active Substance: CIPROFLOXACIN
     Indication: INFUSION RELATED REACTION
     Route: 042
     Dates: start: 20160308, end: 20160315
  8. VANCOMYCIN [Concomitant]
     Active Substance: VANCOMYCIN
     Indication: INFUSION RELATED REACTION
     Route: 042
     Dates: start: 20160308, end: 20160310
  9. OBINUTUZUMAB [Suspect]
     Active Substance: OBINUTUZUMAB
     Indication: CHRONIC LYMPHOCYTIC LEUKAEMIA
     Dosage: ON 24/MAR/2016, MOST RECENT LAST DOSE (10:18).
     Route: 042
     Dates: start: 20160308, end: 20160324
  10. LORATADINE. [Concomitant]
     Active Substance: LORATADINE
     Route: 048
     Dates: start: 20160308, end: 20160324
  11. SALMON OIL [Concomitant]
     Active Substance: FISH OIL
     Route: 048
  12. PHENERGAN [Concomitant]
     Active Substance: PROMETHAZINE HYDROCHLORIDE
     Route: 042
     Dates: start: 20160308, end: 20160324
  13. METHYLPREDNISOLONE. [Concomitant]
     Active Substance: METHYLPREDNISOLONE
     Route: 042
     Dates: start: 20160308, end: 20160324
  14. MAXOLON [Concomitant]
     Active Substance: METOCLOPRAMIDE HYDROCHLORIDE
     Indication: INFUSION RELATED REACTION
     Route: 048
     Dates: start: 20160308, end: 20160308

REACTIONS (1)
  - Myelodysplastic syndrome [Fatal]

NARRATIVE: CASE EVENT DATE: 20160329
